FAERS Safety Report 17665091 (Version 1)
Quarter: 2020Q2

REPORT INFORMATION
  Report Type: Spontaneous
  Country: CH (occurrence: CH)
  Receive Date: 20200414
  Receipt Date: 20200414
  Transmission Date: 20200713
  Serious: Yes (Other)
  Sender: FDA-Public Use
  Company Number: CH-PFIZER INC-2020148731

PATIENT
  Age: 4 Week

DRUGS (1)
  1. CYTOTEC [Suspect]
     Active Substance: MISOPROSTOL
     Indication: SUBCHORIONIC HAEMATOMA
     Dosage: 200 UG, 2X/DAY
     Route: 063
     Dates: start: 20200403, end: 20200407

REACTIONS (2)
  - Diarrhoea neonatal [Unknown]
  - Exposure via breast milk [Unknown]
